FAERS Safety Report 8377281-5 (Version None)
Quarter: 2012Q2

REPORT INFORMATION
  Report Type: 
  Country: None (occurrence: None)
  Receive Date: 20120522
  Receipt Date: 20120517
  Transmission Date: 20120825
  Serious: Yes (Other)
  Sender: FDA-Public Use
  Company Number: US-PFIZER INC-2012120964

PATIENT
  Sex: Male
  Weight: 77.1 kg

DRUGS (4)
  1. TYLENOL [Concomitant]
     Indication: BACK PAIN
  2. SUTENT [Suspect]
     Indication: METASTATIC RENAL CELL CARCINOMA
     Dosage: 37.5 MG, CYCLIC (12.5MG X 3 CAPSULES)
     Dates: start: 20120413, end: 20120101
  3. TYLENOL [Concomitant]
     Indication: MUSCULOSKELETAL PAIN
     Dosage: UNK
  4. ATENOLOL [Concomitant]
     Dosage: UNK

REACTIONS (8)
  - BURNING SENSATION [None]
  - VOCAL CORD DISORDER [None]
  - NECK MASS [None]
  - MUSCULOSKELETAL PAIN [None]
  - LUNG DISORDER [None]
  - SKIN FISSURES [None]
  - MEMORY IMPAIRMENT [None]
  - DYSPHONIA [None]
